FAERS Safety Report 21102252 (Version 1)
Quarter: 2022Q3

REPORT INFORMATION
  Report Type: Spontaneous
  Country: IE (occurrence: IE)
  Receive Date: 20220719
  Receipt Date: 20220719
  Transmission Date: 20221027
  Serious: Yes (Other)
  Sender: FDA-Public Use
  Company Number: IE-AMERICAN REGENT INC-2022001987

PATIENT
  Age: 90 Year
  Sex: Female
  Weight: 80 kg

DRUGS (1)
  1. FERINJECT [Suspect]
     Active Substance: FERRIC CARBOXYMALTOSE
     Indication: Product used for unknown indication
     Dosage: 1 GRAM, STAT
     Dates: start: 20220616, end: 20220616

REACTIONS (2)
  - Skin discolouration [Not Recovered/Not Resolved]
  - Infusion site extravasation [Not Recovered/Not Resolved]

NARRATIVE: CASE EVENT DATE: 20220616
